FAERS Safety Report 16855122 (Version 1)
Quarter: 2019Q3

REPORT INFORMATION
  Report Type: Spontaneous
  Country: US (occurrence: US)
  Receive Date: 20190926
  Receipt Date: 20190926
  Transmission Date: 20191005
  Serious: No
  Sender: FDA-Public Use
  Company Number: US-GLENMARK PHARMACEUTICALS-2019GMK042507

PATIENT
  Sex: Female

DRUGS (1)
  1. DESMOPRESSIN ACETATE TABLETS, 0.2MG [Suspect]
     Active Substance: DESMOPRESSIN ACETATE
     Indication: DIABETES INSIPIDUS
     Dosage: 5.2 MG, QD (26 TABLETS)
     Route: 065

REACTIONS (2)
  - Overdose [Unknown]
  - No adverse event [Unknown]
